FAERS Safety Report 19495588 (Version 1)
Quarter: 2021Q3

REPORT INFORMATION
  Report Type: Report from Study
  Country: CA (occurrence: CA)
  Receive Date: 20210706
  Receipt Date: 20210706
  Transmission Date: 20211014
  Serious: Yes (Other)
  Sender: FDA-Public Use
  Company Number: CA-JNJFOC-20210316291

PATIENT
  Age: 17 Year
  Sex: Female

DRUGS (1)
  1. REMICADE [Suspect]
     Active Substance: INFLIXIMAB
     Indication: JUVENILE IDIOPATHIC ARTHRITIS
     Dosage: ON 30?JUN?2021, THE PATIENT RECEIVED 43 INFLIXIMAB INFUSION FOR DOSE OF 400 MG.
     Route: 042
     Dates: start: 20171012

REACTIONS (4)
  - Mineral supplementation [Unknown]
  - Off label use [Unknown]
  - Product use in unapproved indication [Unknown]
  - Asthenia [Recovered/Resolved]

NARRATIVE: CASE EVENT DATE: 20171012
